FAERS Safety Report 13793219 (Version 2)
Quarter: 2017Q3

REPORT INFORMATION
  Report Type: Report from Study
  Country: FR (occurrence: FR)
  Receive Date: 20170726
  Receipt Date: 20170804
  Transmission Date: 20171127
  Serious: No
  Sender: FDA-Public Use
  Company Number: FR-ASTELLAS-2017US016179

PATIENT
  Age: 85 Year
  Sex: Male

DRUGS (6)
  1. BISOPROLOL [Concomitant]
     Active Substance: BISOPROLOL
     Indication: HYPERTENSIVE HEART DISEASE
     Dosage: UNK UNK, UNKNOWN FREQ.
     Route: 048
     Dates: start: 2007, end: 20170406
  2. ENZALUTAMIDE [Suspect]
     Active Substance: ENZALUTAMIDE
     Indication: HORMONE-REFRACTORY PROSTATE CANCER
     Route: 048
     Dates: start: 20170222, end: 20170328
  3. FUROSEMIDE. [Concomitant]
     Active Substance: FUROSEMIDE
     Indication: RENAL FAILURE
     Dosage: UNK UNK, UNKNOWN FREQ.
     Route: 048
     Dates: start: 201607, end: 20170406
  4. DIFFU K [Concomitant]
     Active Substance: POTASSIUM CHLORIDE
     Indication: RENAL FAILURE
     Dosage: UNK UNK, UNKNOWN FREQ.
     Route: 048
     Dates: start: 201607, end: 20170406
  5. PREVISCAN                          /00789001/ [Concomitant]
     Active Substance: FLUINDIONE
     Indication: HYPERTENSIVE HEART DISEASE
     Dosage: UNK UNK, UNKNOWN FREQ.
     Route: 048
     Dates: start: 2007, end: 20170406
  6. FIRMAGON [Concomitant]
     Active Substance: DEGARELIX ACETATE
     Indication: PROSTATE CANCER
     Dosage: UNK UNK, UNKNOWN FREQ.
     Route: 058
     Dates: start: 201607, end: 20170406

REACTIONS (2)
  - Decreased appetite [Not Recovered/Not Resolved]
  - Asthenia [Not Recovered/Not Resolved]

NARRATIVE: CASE EVENT DATE: 20170328
